FAERS Safety Report 25984127 (Version 1)
Quarter: 2025Q4

REPORT INFORMATION
  Report Type: Spontaneous
  Country: US (occurrence: US)
  Receive Date: 20251031
  Receipt Date: 20251031
  Transmission Date: 20260117
  Serious: Yes (Death, Life-Threatening, Hospitalization)
  Sender: AMGEN
  Company Number: US-AMGEN-USASP2025213153

PATIENT

DRUGS (2)
  1. PREDNISONE [Suspect]
     Active Substance: PREDNISONE
     Indication: Encephalitis
     Dosage: } 20 MG
     Route: 065
  2. RITUXIMAB [Suspect]
     Active Substance: RITUXIMAB
     Indication: Encephalitis
     Dosage: UNK
     Route: 065

REACTIONS (6)
  - CSF glucose decreased [Fatal]
  - Autoimmune disorder [Fatal]
  - Encephalitis viral [Fatal]
  - Encephalitis fungal [Fatal]
  - Encephalitis bacterial [Fatal]
  - Off label use [Unknown]
